FAERS Safety Report 4837309-3 (Version None)
Quarter: 2005Q4

REPORT INFORMATION
  Report Type: 
  Country: None (occurrence: None)
  Receive Date: 20051128
  Receipt Date: 20051116
  Transmission Date: 20060501
  Serious: Yes (Hospitalization, Other)
  Sender: FDA-Public Use
  Company Number: US-BRISTOL-MYERS SQUIBB COMPANY-13183207

PATIENT
  Age: 81 Year
  Sex: Female
  Weight: 33 kg

DRUGS (2)
  1. MAXIPIME [Suspect]
     Indication: ENDOCARDITIS
     Dosage: 5G00054 (VIAL #2) EXPIRATION DATE: JUN-2008
     Route: 042
     Dates: start: 20050913, end: 20051024
  2. VANCOMYCIN [Concomitant]
     Route: 042
     Dates: end: 20051024

REACTIONS (2)
  - GENERAL PHYSICAL HEALTH DETERIORATION [None]
  - MALAISE [None]
